FAERS Safety Report 5941843-2 (Version None)
Quarter: 2008Q4

REPORT INFORMATION
  Report Type: 
  Country: None (occurrence: None)
  Receive Date: 20081031
  Receipt Date: 20081022
  Transmission Date: 20090506
  Serious: Yes (Other)
  Sender: FDA-Public Use
  Company Number: 2008BI023104

PATIENT
  Age: 60 Year
  Sex: Female

DRUGS (6)
  1. AVONEX [Suspect]
     Indication: MULTIPLE SCLEROSIS
     Dosage: 30 UG; QW; IM
     Route: 030
     Dates: start: 20000913
  2. ZOLOFT [Concomitant]
  3. TIZANIDINE HCL [Concomitant]
  4. ELAVIL [Concomitant]
  5. ARIMIDEX [Concomitant]
  6. TRICOR [Concomitant]

REACTIONS (1)
  - BREAST CANCER STAGE I [None]
